FAERS Safety Report 14506023 (Version 1)
Quarter: 2018Q1

REPORT INFORMATION
  Report Type: Spontaneous
  Country: US (occurrence: US)
  Receive Date: 20180208
  Receipt Date: 20180208
  Transmission Date: 20180509
  Serious: Yes (Other)
  Sender: FDA-Public Use
  Company Number: US-TEVA-2018-US-855748

PATIENT
  Age: 8 Month
  Sex: Female

DRUGS (5)
  1. DOXORUBICIN [Concomitant]
     Active Substance: DOXORUBICIN
     Indication: ADRENOCORTICAL CARCINOMA
     Route: 065
  2. ETOPOSIDE. [Concomitant]
     Active Substance: ETOPOSIDE
     Indication: ADRENOCORTICAL CARCINOMA
     Route: 065
  3. MITOTANE [Concomitant]
     Active Substance: MITOTANE
     Indication: ADRENOCORTICAL CARCINOMA
     Dosage: GIVEN BY GASTROSTOMY TUBE IN A LIPOPHILIC SUSPENSION, WITH SERUM LEVELS FOLLOWED TO MAINTAIN A LE...
     Route: 050
  4. ANDROGEL [Suspect]
     Active Substance: TESTOSTERONE
     Route: 061
  5. CISPLATIN. [Concomitant]
     Active Substance: CISPLATIN
     Indication: ADRENOCORTICAL CARCINOMA
     Dosage: TOTAL DOSE 750MG/M2
     Route: 065

REACTIONS (3)
  - Virilism [Recovered/Resolved]
  - Blood testosterone increased [Recovered/Resolved]
  - Accidental exposure to product by child [Recovered/Resolved]
